FAERS Safety Report 4367702-7 (Version None)
Quarter: 2004Q2

REPORT INFORMATION
  Report Type: 
  Country: None (occurrence: None)
  Receive Date: 20040601
  Receipt Date: 20040517
  Transmission Date: 20050107
  Serious: Yes (Other)
  Sender: FDA-Public Use
  Company Number: DE-JNJFOC-20040306564

PATIENT
  Sex: Male
  Weight: 63.5 kg

DRUGS (9)
  1. TOPAMAX [Suspect]
     Indication: EPILEPSY
     Route: 049
  2. NORVASC [Interacting]
     Indication: DRUG USE FOR UNKNOWN INDICATION
     Route: 065
  3. CLONIDIN [Concomitant]
     Route: 049
  4. NIFICAL [Concomitant]
     Route: 065
  5. ACETYLCYSTEINE [Concomitant]
     Route: 049
  6. KALINOR [Concomitant]
     Route: 065
  7. DECORTIN [Concomitant]
     Route: 049
  8. LASIX [Concomitant]
     Route: 065
  9. LACTULOSE [Concomitant]
     Route: 049

REACTIONS (3)
  - CHOLESTASIS [None]
  - DRUG INTERACTION [None]
  - HEPATITIS [None]
